FAERS Safety Report 26038798 (Version 1)
Quarter: 2025Q4

REPORT INFORMATION
  Report Type: Spontaneous
  Country: NZ (occurrence: NZ)
  Receive Date: 20251113
  Receipt Date: 20251113
  Transmission Date: 20260118
  Serious: Yes (Other)
  Sender: SANDOZ
  Company Number: NZ-SANDOZ-SDZ2025NZ084330

PATIENT
  Sex: Female

DRUGS (1)
  1. ESTRADIOL [Suspect]
     Active Substance: ESTRADIOL
     Indication: Product used for unknown indication
     Dosage: ESTRADOT 100 MCG/24H TRANSDERMAL PATCH
     Route: 065

REACTIONS (3)
  - Menopausal symptoms [Unknown]
  - Loss of personal independence in daily activities [Unknown]
  - Dermal absorption impaired [Unknown]
